FAERS Safety Report 16186838 (Version 1)
Quarter: 2019Q2

REPORT INFORMATION
  Report Type: Spontaneous
  Country: FR (occurrence: FR)
  Receive Date: 20190411
  Receipt Date: 20190411
  Transmission Date: 20190711
  Serious: Yes (Other)
  Sender: FDA-Public Use
  Company Number: FR-PFIZER INC-2019154935

PATIENT
  Age: 45 Year
  Sex: Male
  Weight: 35 kg

DRUGS (6)
  1. EUPANTOL [Suspect]
     Active Substance: PANTOPRAZOLE SODIUM
     Dosage: 40 MG, 1X/DAY
     Route: 042
     Dates: start: 20190219, end: 20190219
  2. NOREPINEPHRINE BITARTRATE. [Suspect]
     Active Substance: NOREPINEPHRINE BITARTRATE
     Dosage: 27.94 MILLIGRAM, QD
     Route: 042
     Dates: start: 20190219, end: 20190221
  3. CEFEPIME [Suspect]
     Active Substance: CEFEPIME HYDROCHLORIDE
     Indication: PNEUMONIA
     Dosage: 2 G, 1X/DAY
     Route: 042
     Dates: start: 20190219, end: 20190222
  4. METRONIDAZOLE. [Suspect]
     Active Substance: METRONIDAZOLE
     Indication: PNEUMONIA
     Dosage: UNK UNK, 1X/DAY
     Route: 042
     Dates: start: 20190219, end: 20190224
  5. SUFENTANIL [Suspect]
     Active Substance: SUFENTANIL
     Indication: SEDATION
     Dosage: 111 UG, 1X/DAY
     Route: 042
     Dates: start: 20190219, end: 20190220
  6. MIDAZOLAM [Suspect]
     Active Substance: MIDAZOLAM HYDROCHLORIDE
     Indication: SEDATION
     Dosage: 17.2 MG, 1X/DAY
     Route: 042
     Dates: start: 20190219, end: 20190220

REACTIONS (1)
  - Encephalopathy [Recovering/Resolving]

NARRATIVE: CASE EVENT DATE: 20190220
